FAERS Safety Report 19392502 (Version 1)
Quarter: 2021Q2

REPORT INFORMATION
  Report Type: Spontaneous
  Country: CN (occurrence: CN)
  Receive Date: 20210608
  Receipt Date: 20210608
  Transmission Date: 20210717
  Serious: Yes (Hospitalization, Other)
  Sender: FDA-Public Use
  Company Number: CN-BAXTER-2021BAX014499

PATIENT
  Age: 52 Year
  Sex: Male
  Weight: 48.8 kg

DRUGS (29)
  1. ENDOXAN [Suspect]
     Active Substance: CYCLOPHOSPHAMIDE
     Dosage: R?DAEPOCH, CYCLOPHOSPHAMIDE 1.125 G + NS 100 ML
     Route: 041
     Dates: start: 20210502, end: 20210502
  2. ETOPOSIDE. [Suspect]
     Active Substance: ETOPOSIDE
     Indication: BURKITT^S LEUKAEMIA
     Dosage: ETOPOSIDE 75 MG  + NS 500 ML, R?DAEPOCH
     Route: 041
     Dates: start: 20210428, end: 20210501
  3. SODIUM CHLORIDE. [Suspect]
     Active Substance: SODIUM CHLORIDE
     Dosage: DOSE REINTRODUCED, DEXAMETHASONE + NS
     Route: 041
  4. ENDOXAN [Suspect]
     Active Substance: CYCLOPHOSPHAMIDE
     Indication: BURKITT^S LEUKAEMIA
     Dosage: CYCLOPHOSPHAMIDE 0.2G + SODIUM CHLORIDE (NS 100ML)
     Route: 041
     Dates: start: 20210422, end: 20210425
  5. DEXAMETHASONE SODIUM PHOSPHATE. [Suspect]
     Active Substance: DEXAMETHASONE SODIUM PHOSPHATE
     Indication: BURKITT^S LEUKAEMIA
     Dosage: DEXAMETHASONE 7.5 MG + NS 100ML
     Route: 041
     Dates: start: 20210423, end: 20210428
  6. ETOPOSIDE. [Suspect]
     Active Substance: ETOPOSIDE
     Dosage: DOSE REINTRODUCED, ETOPOSIDE + NS
     Route: 041
  7. VINCRISTINE [Suspect]
     Active Substance: VINCRISTINE
     Indication: BURKITT^S LEUKAEMIA
     Dosage: VINCRISTINE 0.6 MG (SELF?PREPARATION) + NS 500 ML, R?DAEPOCH
     Route: 041
     Dates: start: 20210428, end: 20210501
  8. PREDNISONE. [Suspect]
     Active Substance: PREDNISONE
     Indication: BURKITT^S LEUKAEMIA
     Route: 065
  9. SODIUM CHLORIDE. [Suspect]
     Active Substance: SODIUM CHLORIDE
     Dosage: DEXAMETHASONE 7.5 MG + NS 100 ML
     Route: 041
     Dates: start: 20210423, end: 20210428
  10. SODIUM CHLORIDE. [Suspect]
     Active Substance: SODIUM CHLORIDE
     Dosage: DOSE REINTRODUCED, ETOPOSIDE + NS
     Route: 041
  11. RITUXIMAB. [Suspect]
     Active Substance: RITUXIMAB
     Indication: BURKITT^S LEUKAEMIA
     Dosage: RITUXIMAB INJECTION 600 MG + NS 540 ML, R?DAEPOCH
     Route: 041
     Dates: start: 20210427, end: 20210427
  12. SODIUM CHLORIDE. [Suspect]
     Active Substance: SODIUM CHLORIDE
     Dosage: VINCRISTINE 0.6 MG (SELF?PREPARATION) + NS 500 ML, R?DAEPOCH CHEMOTHERAPY
     Route: 041
     Dates: start: 20210428, end: 20210501
  13. DEXAMETHASONE SODIUM PHOSPHATE. [Suspect]
     Active Substance: DEXAMETHASONE SODIUM PHOSPHATE
     Dosage: DOSE REINTRODUCED
     Route: 041
  14. SODIUM CHLORIDE. [Suspect]
     Active Substance: SODIUM CHLORIDE
     Dosage: ETOPOSIDE 75 MG  + NS 500 ML, R?DAEPOCH CHEMOTHERAPY
     Route: 041
     Dates: start: 20210428, end: 20210501
  15. 5% GLUCOSE  INJECTION [Suspect]
     Active Substance: DEXTROSE
     Dosage: DOSE REINTRODUCED?LIPOSOME DOXORUBICIN  + 5% GS
     Route: 041
  16. VINCRISTINE [Suspect]
     Active Substance: VINCRISTINE
     Dosage: DOSE REINTRODUCED, VINCRISTINE + NS
     Route: 041
  17. LIPOSOMAL DOXORUBICIN [Suspect]
     Active Substance: DOXORUBICIN HYDROCHLORIDE
     Dosage: DOSE REINTRODUCED, LIPOSOME DOXORUBICIN+ 5% GS
     Route: 041
  18. SODIUM CHLORIDE. [Suspect]
     Active Substance: SODIUM CHLORIDE
     Dosage: DEXAMETHASONE 15 MG + NS 100 ML, R?DAEPOCH CHEMOTHERAPY
     Route: 041
     Dates: start: 20210428, end: 20210502
  19. SODIUM CHLORIDE. [Suspect]
     Active Substance: SODIUM CHLORIDE
     Dosage: DOSE REINTRODUCED, CYCLOPHOSPHAMIDE + NS
     Route: 041
  20. 0.9% SODIUM CHLORIDE INJECTION [Suspect]
     Active Substance: SODIUM CHLORIDE
     Indication: MEDICATION DILUTION
     Dosage: RITUXIMAB INJECTION 600 MG + NS 540 ML, R?DAEPOCH CHEMOTHERAPY
     Route: 041
     Dates: start: 20210427, end: 20210427
  21. 5% GLUCOSE  INJECTION [Suspect]
     Active Substance: DEXTROSE
     Indication: MEDICATION DILUTION
     Dosage: LIPOSOME DOXORUBICIN 20 MG + 5% GS 250 ML?R?DAEPOCH CHEMOTHERAPY
     Route: 041
     Dates: start: 20210428, end: 20210430
  22. RITUXIMAB. [Suspect]
     Active Substance: RITUXIMAB
     Dosage: DOSE REINTRODUCED, RITUXIMAB INJECTION + NS
     Route: 041
  23. ENDOXAN [Suspect]
     Active Substance: CYCLOPHOSPHAMIDE
     Dosage: DOSE REINTRODUCED, CYCLOPHOSPHAMIDE + NS
     Route: 041
  24. 0.9% SODIUM CHLORIDE INJECTION [Suspect]
     Active Substance: SODIUM CHLORIDE
     Dosage: DOSE REINTRODUCED, RITUXIMAB INJECTION + NS
     Route: 041
  25. DEXAMETHASONE SODIUM PHOSPHATE. [Suspect]
     Active Substance: DEXAMETHASONE SODIUM PHOSPHATE
     Dosage: DEXAMETHASONE 15 MG + NS 100 ML, R?DAEPOCH
     Route: 041
     Dates: start: 20210428, end: 20210502
  26. LIPOSOMAL DOXORUBICIN [Suspect]
     Active Substance: DOXORUBICIN HYDROCHLORIDE
     Indication: BURKITT^S LEUKAEMIA
     Dosage: LIPOSOME DOXORUBICIN 20 MG + 5% GS 250 ML, R?DAEPOCH
     Route: 041
     Dates: start: 20210428, end: 20210430
  27. SODIUM CHLORIDE. [Suspect]
     Active Substance: SODIUM CHLORIDE
     Indication: MEDICATION DILUTION
     Dosage: LYOPHILIZED POWDER, CYCLOPHOSPHAMIDE 0.2G + SODIUM CHLORIDE (NS 100ML)
     Route: 041
     Dates: start: 20210422, end: 20210425
  28. SODIUM CHLORIDE. [Suspect]
     Active Substance: SODIUM CHLORIDE
     Dosage: CYCLOPHOSPHAMIDE 1.125 G + NS 100 ML, R?DAEPOCH CHEMOTHERAPY
     Route: 041
     Dates: start: 20210502, end: 20210502
  29. SODIUM CHLORIDE. [Suspect]
     Active Substance: SODIUM CHLORIDE
     Dosage: DOSE REINTRODUCED, VINCRISTINE + NS
     Route: 041

REACTIONS (2)
  - Pancytopenia [Recovered/Resolved]
  - Myelosuppression [Recovering/Resolving]

NARRATIVE: CASE EVENT DATE: 20210428
